FAERS Safety Report 16280430 (Version 1)
Quarter: 2019Q2

REPORT INFORMATION
  Report Type: Report from Study
  Country: FI (occurrence: FI)
  Receive Date: 20190507
  Receipt Date: 20190507
  Transmission Date: 20190711
  Serious: Yes (Death)
  Sender: FDA-Public Use
  Company Number: FI-TEVA-2019-FI-1046679

PATIENT
  Age: 52 Year
  Sex: Male

DRUGS (11)
  1. DULOXETINE. [Interacting]
     Active Substance: DULOXETINE
     Route: 065
  2. HYDROXYZINE [Interacting]
     Active Substance: HYDROXYZINE HYDROCHLORIDE
     Route: 065
  3. NAPROXEN. [Concomitant]
     Active Substance: NAPROXEN
     Route: 065
  4. DESMETHYLDIAZEPAM [Concomitant]
     Active Substance: NORDAZEPAM
     Route: 065
  5. TRIMIPRAMINE [Concomitant]
     Active Substance: TRIMIPRAMINE
     Route: 065
  6. DIAZEPAM. [Concomitant]
     Active Substance: DIAZEPAM
     Route: 065
  7. PROPRANOLOL [Concomitant]
     Active Substance: PROPRANOLOL HYDROCHLORIDE
     Route: 065
  8. CITALOPRAM [Suspect]
     Active Substance: CITALOPRAM HYDROBROMIDE
     Route: 065
  9. VALPROIC-ACID [Concomitant]
     Active Substance: VALPROIC ACID
     Route: 065
  10. TRAMADOL. [Interacting]
     Active Substance: TRAMADOL
     Route: 065
  11. PREGABALIN. [Concomitant]
     Active Substance: PREGABALIN
     Route: 065

REACTIONS (2)
  - Drug interaction [Fatal]
  - Death [Fatal]
